FAERS Safety Report 7404418-4 (Version None)
Quarter: 2011Q2

REPORT INFORMATION
  Report Type: 
  Country: None (occurrence: None)
  Receive Date: 20110408
  Receipt Date: 20110329
  Transmission Date: 20111010
  Serious: Yes (Other)
  Sender: FDA-Public Use
  Company Number: BR-GENENTECH-293857

PATIENT
  Sex: Male
  Weight: 82 kg

DRUGS (4)
  1. RITUXIMAB [Suspect]
     Indication: SYSTEMIC LUPUS ERYTHEMATOSUS
     Dosage: UNK
     Route: 050
     Dates: start: 20090301, end: 20101221
  2. METICORTEN [Concomitant]
     Indication: PRODUCT USED FOR UNKNOWN INDICATION
     Dosage: 10 MG, UNK
  3. CONCOMITANT DRUG [Concomitant]
     Indication: PREMEDICATION
     Dosage: UNK
     Dates: start: 20100301, end: 20101201
  4. ATACAND [Concomitant]
     Indication: PRODUCT USED FOR UNKNOWN INDICATION
     Dosage: 16 MG, UNK

REACTIONS (4)
  - PULMONARY FIBROSIS [None]
  - ADENOCARCINOMA [None]
  - PNEUMONIA ASPIRATION [None]
  - NASOPHARYNGITIS [None]
